FAERS Safety Report 6207510-5 (Version None)
Quarter: 2009Q2

REPORT INFORMATION
  Report Type: 
  Country: None (occurrence: None)
  Receive Date: 20090528
  Receipt Date: 20090518
  Transmission Date: 20091009
  Serious: Yes (Hospitalization)
  Sender: FDA-Public Use
  Company Number: GB-AVENTIS-200912351GDDC

PATIENT
  Age: 46 Year
  Sex: Female
  Weight: 102 kg

DRUGS (9)
  1. LANTUS [Suspect]
     Route: 058
     Dates: start: 20081224
  2. PULMICORT-100 [Concomitant]
     Indication: ASTHMA
     Route: 055
  3. GLUCOPHAGE [Concomitant]
  4. CANDESARTAN [Concomitant]
  5. BENDROFLUMETHIAZIDE [Concomitant]
  6. ALBUTEROL [Concomitant]
     Indication: ASTHMA
     Route: 055
  7. DIHYDROCODEINE BITARTRATE INJ [Concomitant]
  8. PARACETAMOL [Concomitant]
  9. BRUFEN [Concomitant]

REACTIONS (5)
  - FALL [None]
  - INJECTION SITE HAEMORRHAGE [None]
  - INJECTION SITE IRRITATION [None]
  - INJECTION SITE PAIN [None]
  - LOWER RESPIRATORY TRACT INFECTION [None]
